FAERS Safety Report 8309385-7 (Version None)
Quarter: 2012Q2

REPORT INFORMATION
  Report Type: 
  Country: None (occurrence: None)
  Receive Date: 20120420
  Receipt Date: 20120403
  Transmission Date: 20120825
  Serious: No
  Sender: FDA-Public Use
  Company Number: GB-DEXPHARM-20120172

PATIENT
  Age: 82 Year
  Sex: Female

DRUGS (14)
  1. AMOXICILLIN AND CLAVULANATE POTASSIUM [Suspect]
     Indication: ANTIBIOTIC PROPHYLAXIS
     Dosage: 1.2 G GRAM(S), INTRAVENOUS
     Route: 042
     Dates: start: 20120320, end: 20120320
  2. QVAR 40 [Concomitant]
  3. MOXONIDINE [Concomitant]
  4. LIDOCAINE [Suspect]
     Indication: PRODUCT USED FOR UNKNOWN INDICATION
     Dosage: 1 ML MILLILITER(S)
     Dates: start: 20120320, end: 20120320
  5. MIDAZOLAM [Suspect]
     Indication: PRODUCT USED FOR UNKNOWN INDICATION
     Dosage: 1 MG (MILLIGRAM(S))
     Dates: start: 20120320, end: 20120320
  6. DILTIAZEM [Concomitant]
  7. DOXAZOSIN MESYLATE [Concomitant]
  8. CHLORHEXIDINE GLUCONATE [Suspect]
     Indication: PRODUCT USED FOR UNKNOWN INDICATION
     Dosage: TOPICAL
     Route: 061
  9. HYOSCINE HBR HYT [Suspect]
     Indication: PROPHYLAXIS OF NAUSEA AND VOMITING
     Dosage: 250 TRANSDERMAL
     Route: 062
  10. ALBUTEROL [Concomitant]
  11. GENTAMICIN [Suspect]
     Indication: PRODUCT USED FOR UNKNOWN INDICATION
     Dosage: 160 MG (MILLIGRAMS)
     Dates: start: 20120320, end: 20120320
  12. ACETAMINOPHEN AND CODEINE PHOSPHATE [Concomitant]
  13. BENDROFLUMETHIAZIDE [Concomitant]
  14. ACETAMINOPHEN [Concomitant]

REACTIONS (1)
  - ANAPHYLACTIC REACTION [None]
